FAERS Safety Report 10152063 (Version 1)
Quarter: 2014Q2

REPORT INFORMATION
  Report Type: Spontaneous
  Country: US (occurrence: US)
  Receive Date: 20140505
  Receipt Date: 20140505
  Transmission Date: 20141212
  Serious: No
  Sender: FDA-Public Use
  Company Number: US-BRISTOL-MYERS SQUIBB COMPANY-20566071

PATIENT
  Age: 77 Year
  Sex: Male
  Weight: 77.1 kg

DRUGS (5)
  1. FORXIGA [Suspect]
     Indication: GLYCOSYLATED HAEMOGLOBIN INCREASED
  2. IRBESARTAN [Concomitant]
  3. SYNTHROID [Concomitant]
  4. SIMVASTATIN [Concomitant]
  5. FAMOTIDINE [Concomitant]

REACTIONS (2)
  - Abdominal distension [Unknown]
  - Constipation [Unknown]
